FAERS Safety Report 6422026-9 (Version None)
Quarter: 2009Q4

REPORT INFORMATION
  Report Type: 
  Country: None (occurrence: None)
  Receive Date: 20091029
  Receipt Date: 20091029
  Transmission Date: 20100525
  Serious: Yes (Life-Threatening, Hospitalization)
  Sender: FDA-Public Use
  Company Number: None

PATIENT

DRUGS (1)
  1. HALOPERIDOL [Suspect]
     Indication: DELIRIUM TREMENS
     Dosage: 1 MG PRN IV
     Route: 042
     Dates: start: 20090411, end: 20090412

REACTIONS (3)
  - ANAPHYLACTIC REACTION [None]
  - COUGH [None]
  - WHEEZING [None]
